FAERS Safety Report 5189750-X (Version None)
Quarter: 2006Q4

REPORT INFORMATION
  Report Type: 
  Country: None (occurrence: None)
  Receive Date: 20061218
  Receipt Date: 20061207
  Transmission Date: 20070319
  Serious: Yes (Hospitalization, Other)
  Sender: FDA-Public Use
  Company Number: 163-21880-06110769

PATIENT
  Age: 65 Year
  Sex: Female
  Weight: 52.708 kg

DRUGS (10)
  1. REVLIMID [Suspect]
     Indication: THYROID CANCER
     Dosage: 15MG, 1 IN 1D, ORAL; 25 MG, 1IN 1 D, ORAL
     Route: 048
     Dates: start: 20060420, end: 20060424
  2. REVLIMID [Suspect]
     Indication: THYROID CANCER
     Dosage: 15MG, 1 IN 1D, ORAL; 25 MG, 1IN 1 D, ORAL
     Route: 048
     Dates: start: 20060420
  3. SYNTHROID [Concomitant]
  4. TOPROL-XL [Concomitant]
  5. CALCITRIOL [Concomitant]
  6. TUMS (CALCIUM CARBONATE) [Concomitant]
  7. CALTRATE (CALCIUM CARBONATE) [Concomitant]
  8. METOCLOPRAMIDE [Concomitant]
  9. LOVENOX [Concomitant]
  10. STEROIDS (STEROID ANTIBACTERIALS) [Concomitant]

REACTIONS (34)
  - ABDOMINAL PAIN UPPER [None]
  - ACINETOBACTER INFECTION [None]
  - ALKALOSIS [None]
  - ANAEMIA [None]
  - BACK PAIN [None]
  - BACTERAEMIA [None]
  - BACTERIAL INFECTION [None]
  - BLOOD ALBUMIN DECREASED [None]
  - BLOOD PRESSURE DECREASED [None]
  - CANDIDIASIS [None]
  - CHEST DISCOMFORT [None]
  - DEHYDRATION [None]
  - DIARRHOEA [None]
  - DYSPNOEA [None]
  - HYPERVENTILATION [None]
  - HYPOCALCAEMIA [None]
  - HYPONATRAEMIA [None]
  - HYPOPARATHYROIDISM [None]
  - MALNUTRITION [None]
  - MYELODYSPLASTIC SYNDROME [None]
  - OEDEMA PERIPHERAL [None]
  - OESOPHAGEAL STENOSIS [None]
  - PLEURAL EFFUSION [None]
  - RASH ERYTHEMATOUS [None]
  - RESPIRATORY TRACT INFECTION [None]
  - RETROPERITONEAL HAEMORRHAGE [None]
  - SKIN DISORDER [None]
  - STAPHYLOCOCCAL INFECTION [None]
  - TENDONITIS [None]
  - THROMBOCYTOPENIA [None]
  - URINARY TRACT INFECTION [None]
  - WEIGHT DECREASED [None]
  - WHITE BLOOD CELL COUNT INCREASED [None]
  - WOUND INFECTION [None]
